FAERS Safety Report 7756506-0 (Version None)
Quarter: 2011Q3

REPORT INFORMATION
  Report Type: 
  Country: None (occurrence: None)
  Receive Date: 20110916
  Receipt Date: 20110906
  Transmission Date: 20111222
  Serious: Yes (Death)
  Sender: FDA-Public Use
  Company Number: US-ELI_LILLY_AND_COMPANY-US201005006790

PATIENT
  Sex: Female

DRUGS (15)
  1. NAMENDA [Concomitant]
     Dosage: 10 MG, 2/D
  2. FORTEO [Suspect]
     Dosage: 20 UG, DAILY (1/D)
  3. RAMIPRIL [Concomitant]
     Dosage: 10 MG, QD
  4. METOPROLOL TARTRATE [Concomitant]
     Dosage: 25 MG, BID
  5. HYDROCHLOROTHIAZIDE [Concomitant]
     Dosage: 25 MG, QD
  6. GABAPENTIN [Concomitant]
     Indication: OEDEMA PERIPHERAL
     Dosage: 100 MG, QD
  7. FORTEO [Suspect]
     Indication: OSTEOPOROSIS
     Dosage: 20 UG, DAILY (1/D)
     Dates: start: 20090901, end: 20091017
  8. ASPIRIN [Concomitant]
     Dosage: 81 MG, QD
  9. FORTEO [Suspect]
     Dosage: 20 UG, QD
  10. FORTEO [Suspect]
     Dosage: 20 UG, QD
  11. FORTEO [Suspect]
     Dosage: 20 UG, QD
  12. ARICEPT [Concomitant]
     Indication: DEMENTIA ALZHEIMER'S TYPE
     Dosage: 10 MG, QD
  13. FORTEO [Suspect]
     Dosage: 20 UG, DAILY (1/D)
  14. LIPITOR [Concomitant]
     Dosage: 10 MG, QD
  15. OSCAL                              /00108001/ [Concomitant]
     Dosage: 500 MG, BID

REACTIONS (8)
  - GROIN ABSCESS [None]
  - ABSCESS [None]
  - RASH [None]
  - CEREBRAL HAEMORRHAGE [None]
  - CEREBROVASCULAR ACCIDENT [None]
  - CYST [None]
  - NASOPHARYNGITIS [None]
  - CONSTIPATION [None]
